FAERS Safety Report 11201122 (Version 2)
Quarter: 2015Q4

REPORT INFORMATION
  Report Type: Spontaneous
  Country: US (occurrence: US)
  Receive Date: 20150619
  Receipt Date: 20151205
  Transmission Date: 20160304
  Serious: Yes (Hospitalization, Other)
  Sender: FDA-Public Use
  Company Number: US-JNJFOC-20150610636

PATIENT
  Age: 45 Year
  Sex: Female
  Weight: 101.61 kg

DRUGS (16)
  1. SOMA [Concomitant]
     Active Substance: CARISOPRODOL
     Indication: PAIN
     Dosage: SOMA (350 MG) 1-2 TABLETS EVERY 4-6 HOURS.
     Route: 048
     Dates: end: 20080713
  2. TYLENOL EXTRA STRENGTH [Suspect]
     Active Substance: ACETAMINOPHEN
     Indication: SPORTS INJURY
     Dosage: EVERY 4 TO 6 HOURS
     Route: 065
     Dates: start: 1989, end: 20080713
  3. TYLENOL EXTRA STRENGTH [Suspect]
     Active Substance: ACETAMINOPHEN
     Indication: PAIN
     Dosage: EVERY 4 TO 6 HOURS
     Route: 065
     Dates: start: 1989, end: 20080713
  4. PERCOCET [Suspect]
     Active Substance: ACETAMINOPHEN\OXYCODONE HYDROCHLORIDE
     Indication: KNEE OPERATION
     Dosage: STARTED APPROXIMATELY IN 2003 OR 2004
     Route: 065
  5. OXYCONTIN [Concomitant]
     Active Substance: OXYCODONE HYDROCHLORIDE
     Indication: POLYARTHRITIS
     Dosage: EVERY 4-6 HOURS. PATIENT WAS USING FROM 3 YEARS OR SO.
     Route: 048
  6. TYLENOL PM EXTRA STRENGTH [Suspect]
     Active Substance: ACETAMINOPHEN\DIPHENHYDRAMINE HYDROCHLORIDE
     Indication: KNEE OPERATION
     Dosage: EVERY 2 TO 6 HOURS
     Route: 048
     Dates: start: 1989, end: 20080713
  7. OXYCODONE W/PARACETAMOL [Suspect]
     Active Substance: ACETAMINOPHEN\OXYCODONE HYDROCHLORIDE
     Indication: PAIN
     Dosage: 1-2 TABLETS EVERY 4-6 HOURS
     Route: 048
     Dates: end: 20080113
  8. TYLENOL PM EXTRA STRENGTH [Suspect]
     Active Substance: ACETAMINOPHEN\DIPHENHYDRAMINE HYDROCHLORIDE
     Indication: BACK PAIN
     Dosage: EVERY 2 TO 6 HOURS
     Route: 048
     Dates: start: 1989, end: 20080713
  9. PERCOCET [Suspect]
     Active Substance: ACETAMINOPHEN\OXYCODONE HYDROCHLORIDE
     Indication: BACK PAIN
     Dosage: STARTED APPROXIMATELY IN 2003 OR 2004
     Route: 065
  10. TYLENOL PM EXTRA STRENGTH [Suspect]
     Active Substance: ACETAMINOPHEN\DIPHENHYDRAMINE HYDROCHLORIDE
     Indication: NECK PAIN
     Dosage: EVERY 2 TO 6 HOURS
     Route: 048
     Dates: start: 1989, end: 20080713
  11. PERCOCET [Suspect]
     Active Substance: ACETAMINOPHEN\OXYCODONE HYDROCHLORIDE
     Indication: NECK PAIN
     Dosage: STARTED APPROXIMATELY IN 2003 OR 2004
     Route: 065
  12. VICODIN [Suspect]
     Active Substance: ACETAMINOPHEN\HYDROCODONE BITARTRATE
     Indication: PAIN
     Route: 065
     Dates: start: 2008
  13. DOXEPIN [Concomitant]
     Active Substance: DOXEPIN
     Indication: PRODUCT USED FOR UNKNOWN INDICATION
     Route: 065
  14. TYLENOL PM EXTRA STRENGTH [Suspect]
     Active Substance: ACETAMINOPHEN\DIPHENHYDRAMINE HYDROCHLORIDE
     Indication: PAIN
     Dosage: EVERY 2 TO 6 HOURS
     Route: 048
     Dates: start: 1989, end: 20080713
  15. PERCOCET [Suspect]
     Active Substance: ACETAMINOPHEN\OXYCODONE HYDROCHLORIDE
     Indication: PAIN
     Dosage: STARTED APPROXIMATELY IN 2003 OR 2004
     Route: 065
  16. OXYCONTIN [Concomitant]
     Active Substance: OXYCODONE HYDROCHLORIDE
     Indication: PAIN
     Dosage: EVERY 4-6 HOURS. PATIENT WAS USING FROM 3 YEARS OR SO.
     Route: 048

REACTIONS (12)
  - Hepatic failure [Recovering/Resolving]
  - Overdose [Recovering/Resolving]
  - Posterior reversible encephalopathy syndrome [None]
  - Chronic obstructive pulmonary disease [None]
  - Renal failure [Recovering/Resolving]
  - Renal tubular necrosis [None]
  - Acute respiratory failure [Recovering/Resolving]
  - Toxicity to various agents [Recovering/Resolving]
  - Metabolic encephalopathy [Recovering/Resolving]
  - Liver injury [None]
  - Seizure [Recovering/Resolving]
  - Hepatitis [None]

NARRATIVE: CASE EVENT DATE: 200807
